FAERS Safety Report 4904609-8 (Version None)
Quarter: 2006Q1

REPORT INFORMATION
  Report Type: 
  Country: None (occurrence: None)
  Receive Date: 20060208
  Receipt Date: 20050920
  Transmission Date: 20060701
  Serious: No
  Sender: FDA-Public Use
  Company Number: US-GLAXOSMITHKLINE-A0575058A

PATIENT
  Sex: Female

DRUGS (2)
  1. PAROXETINE HCL [Suspect]
     Indication: PANIC DISORDER
     Dosage: 20MG SINGLE DOSE
     Route: 048
     Dates: start: 20050101
  2. PAXIL [Suspect]
     Indication: PANIC DISORDER
     Dosage: 20MG PER DAY
     Route: 048

REACTIONS (4)
  - BURN OESOPHAGEAL [None]
  - DISSOCIATION [None]
  - DYSPEPSIA [None]
  - PANIC ATTACK [None]
